FAERS Safety Report 8102447 (Version 5)
Quarter: 2012Q4

REPORT INFORMATION
  Report Type: Report from Study
  Country: JP (occurrence: JP)
  Receive Date: 20110823
  Receipt Date: 20121019
  Transmission Date: 20130627
  Serious: Yes (Hospitalization)
  Sender: FDA-Public Use
  Company Number: JP-UCBSA-038988

PATIENT
  Age: 62 Year
  Sex: Female

DRUGS (14)
  1. CERTOLIZUMAB PEGOL [Suspect]
     Indication: RHEUMATOID ARTHRITIS
     Route: 058
     Dates: start: 20110201
  2. CERTOLIZUMAB PEGOL [Suspect]
     Indication: RHEUMATOID ARTHRITIS
     Route: 058
     Dates: start: 20100202, end: 20110118
  3. OMEPRAZOLE [Concomitant]
     Dosage: DAILY DOSE:10MG
  4. NIFEDIPINE [Concomitant]
     Dosage: TOTAL DAILY DOSE: 40 MG
  5. FOLIC ACID [Concomitant]
  6. PREDNISOLONE [Concomitant]
     Dosage: DAILY DOSE:3MG
     Dates: start: 20110202
  7. REBAMIPIDE [Concomitant]
     Dosage: DAILY DOSE:300MG
  8. OLOPATADINE HYDROCHLORIDE [Concomitant]
     Dosage: DAILY DOSE:10MG
     Dates: start: 20110720
  9. IRBESARTAN [Concomitant]
     Dosage: DAILY DOSE:100MG
  10. DIPYRIDAMOLE [Concomitant]
     Dosage: DAILY DOSE:150MG
  11. AMBROXOL HYDROCHLORIDE [Concomitant]
     Dosage: DAILY DOSE:45MG
     Dates: start: 20110621
  12. METHOTREXATE [Concomitant]
     Dosage: DIVIDED INTO THREE
  13. MELOXICAM [Concomitant]
     Dosage: DAILY DOSE:10MG
     Dates: start: 20110330, end: 20110816
  14. AROTINOLOL HYDROCHLORIDE [Concomitant]
     Dosage: DAILY DOSE:10MG

REACTIONS (1)
  - Pneumonia [Recovered/Resolved]
